FAERS Safety Report 8747882 (Version 2)
Quarter: 2013Q1

REPORT INFORMATION
  Report Type: Spontaneous
  Country: FR (occurrence: FR)
  Receive Date: 20120827
  Receipt Date: 20130130
  Transmission Date: 20140127
  Serious: Yes (Hospitalization)
  Sender: FDA-Public Use
  Company Number: FR-GLAXOSMITHKLINE-B0823141A

PATIENT
  Age: 52 Year
  Sex: Male

DRUGS (5)
  1. ZOPHREN [Suspect]
     Indication: PREMEDICATION
     Dosage: 8MG SINGLE DOSE
     Route: 042
     Dates: start: 20120620, end: 20120620
  2. CARBOPLATINE [Suspect]
     Indication: LUNG NEOPLASM MALIGNANT
     Dosage: 415MG CYCLIC
     Route: 042
     Dates: start: 20120620, end: 20120620
  3. PLITICAN [Suspect]
     Indication: PREMEDICATION
     Dosage: 150MG SINGLE DOSE
     Route: 042
     Dates: start: 20120620, end: 20120620
  4. METHYLPREDNISOLONE [Suspect]
     Indication: PREMEDICATION
     Dosage: 40MG SINGLE DOSE
     Route: 042
     Dates: start: 20120620, end: 20120620
  5. VINORELBINE [Concomitant]
     Indication: LUNG NEOPLASM MALIGNANT
     Route: 042
     Dates: start: 20120509

REACTIONS (5)
  - Formication [Recovered/Resolved]
  - Malaise [Recovered/Resolved]
  - Cyanosis [Recovered/Resolved]
  - Heart rate increased [None]
  - Oxygen saturation decreased [None]
